FAERS Safety Report 12268936 (Version 3)
Quarter: 2016Q2

REPORT INFORMATION
  Report Type: Spontaneous
  Country: DZ (occurrence: DZ)
  Receive Date: 20160414
  Receipt Date: 20160429
  Transmission Date: 20160815
  Serious: Yes (Other)
  Sender: FDA-Public Use
  Company Number: DZ-PFIZER INC-2016154491

PATIENT
  Age: 15 Year
  Sex: Female

DRUGS (2)
  1. SUTENT [Suspect]
     Active Substance: SUNITINIB MALATE
     Indication: RENAL CANCER
     Dosage: 50 MG : 4 WEEKS ON/2 WEEKS  OFF
     Dates: start: 20150628, end: 201511
  2. SUTENT [Suspect]
     Active Substance: SUNITINIB MALATE
     Dosage: 50 MG, 2 WEEKS ON/2 WEEK1  OFF

REACTIONS (9)
  - Suicide attempt [Unknown]
  - Product use issue [Unknown]
  - Hypothyroidism [Unknown]
  - Yellow skin [Unknown]
  - Hair colour changes [Unknown]
  - Emotional distress [Unknown]
  - Neutropenia [Unknown]
  - Thrombocytopenia [Unknown]
  - Asthenia [Unknown]
